FAERS Safety Report 9340640 (Version 3)
Quarter: 2013Q4

REPORT INFORMATION
  Report Type: Spontaneous
  Country: US (occurrence: US)
  Receive Date: 20130610
  Receipt Date: 20131008
  Transmission Date: 20140711
  Serious: Yes (Hospitalization)
  Sender: FDA-Public Use
  Company Number: US-JNJFOC-20130600158

PATIENT
  Age: 15 Year
  Sex: Female

DRUGS (2)
  1. EVITHROM [Suspect]
     Indication: PRODUCT USED FOR UNKNOWN INDICATION
     Route: 061
     Dates: start: 20130501, end: 20130501
  2. LOCAL HAEMOSTATICS [Suspect]
     Indication: PRODUCT USED FOR UNKNOWN INDICATION
     Route: 050
     Dates: start: 20130501, end: 20130501

REACTIONS (2)
  - Hypotension [Unknown]
  - Anaphylactic reaction [Unknown]
